FAERS Safety Report 4579956-2 (Version None)
Quarter: 2005Q1

REPORT INFORMATION
  Report Type: 
  Country: None (occurrence: None)
  Receive Date: 20050214
  Receipt Date: 20050111
  Transmission Date: 20050727
  Serious: Yes (Hospitalization)
  Sender: FDA-Public Use
  Company Number: GB-BRISTOL-MYERS SQUIBB COMPANY-12821294

PATIENT
  Age: 49 Year
  Sex: Male
  Weight: 83 kg

DRUGS (13)
  1. ABILIFY [Suspect]
     Indication: SCHIZOPHRENIA
     Dosage: INITIATED AT 10 MG/DAY, INCREASED ON 10-NOV-04 TO 15 MG/DAY THEN TO 20 MG/DAY ON 15-NOV-2004.
     Route: 048
     Dates: start: 20040330
  2. OMEPRAZOLE [Concomitant]
     Indication: GASTRIC ULCER
     Route: 048
  3. METFORMIN HCL [Concomitant]
     Indication: DIABETES MELLITUS
     Route: 048
  4. GLICLAZIDE [Concomitant]
     Indication: DIABETES MELLITUS
     Route: 048
  5. ATORVASTATIN [Concomitant]
     Indication: BLOOD CHOLESTEROL
     Route: 048
  6. MELOXICAM [Concomitant]
     Indication: ARTHRITIS
     Route: 048
  7. CLONAZEPAM [Concomitant]
     Indication: ANXIETY
     Route: 048
     Dates: start: 20040712
  8. CITALOPRAM [Concomitant]
     Indication: DEPRESSION
     Route: 048
     Dates: start: 20040811
  9. FLUCLOXACILLIN [Concomitant]
     Indication: ARTHRITIS INFECTIVE
     Route: 048
     Dates: start: 20050128
  10. GABAPENTIN [Concomitant]
     Indication: MUSCLE SPASMS
     Route: 048
     Dates: start: 20041101
  11. PENICILLIN [Concomitant]
     Indication: ARTHRITIS INFECTIVE
     Route: 048
     Dates: start: 20050128
  12. DIHYDROCODEINE [Concomitant]
     Indication: BACK PAIN
     Route: 048
     Dates: start: 20050128
  13. SENNA [Concomitant]
     Indication: CONSTIPATION
     Route: 048

REACTIONS (2)
  - CONDITION AGGRAVATED [None]
  - SCHIZOPHRENIA [None]
